FAERS Safety Report 7800674-9 (Version None)
Quarter: 2011Q4

REPORT INFORMATION
  Report Type: 
  Country: None (occurrence: None)
  Receive Date: 20111006
  Receipt Date: 20110818
  Transmission Date: 20120403
  Serious: No
  Sender: FDA-Public Use
  Company Number: US-BAYER-2011-079106

PATIENT
  Age: -1 Year
  Sex: Female

DRUGS (2)
  1. EXCEDRIN ASPIRIN FREE [Concomitant]
     Indication: HEADACHE
  2. ALEVE (CAPLET) [Suspect]
     Indication: HEADACHE
     Dosage: 2 DF, UNK
     Route: 048

REACTIONS (1)
  - VERTIGO [None]
